FAERS Safety Report 15687276 (Version 2)
Quarter: 2020Q4

REPORT INFORMATION
  Report Type: Spontaneous
  Country: US (occurrence: US)
  Receive Date: 20181205
  Receipt Date: 20201116
  Transmission Date: 20210113
  Serious: Yes (Disabling)
  Sender: FDA-Public Use
  Company Number: US-TEVA-2018-US-982213

PATIENT
  Age: 36 Year
  Sex: Female

DRUGS (8)
  1. ZOLOFT [Concomitant]
     Active Substance: SERTRALINE HYDROCHLORIDE
     Indication: BREAST CANCER FEMALE
     Dates: start: 2011
  2. DOCETAXEL SANOFI [Suspect]
     Active Substance: DOCETAXEL
     Dosage: DOSAGE: 122 MILLIGRAMS, NUMBER OF CYCLES: 04; EVERY THREE WEEKS
     Route: 065
     Dates: start: 20140617, end: 20140819
  3. LIDOCAINE. [Concomitant]
     Active Substance: LIDOCAINE
     Dates: start: 20140708, end: 20151221
  4. XANAX [Concomitant]
     Active Substance: ALPRAZOLAM
     Dates: start: 2010
  5. ZOLOFT [Concomitant]
     Active Substance: SERTRALINE HYDROCHLORIDE
     Indication: METASTASIS
  6. FASLODEX [Concomitant]
     Active Substance: FULVESTRANT
     Dates: start: 20140617, end: 20151109
  7. METHADONE [Concomitant]
     Active Substance: METHADONE HYDROCHLORIDE
     Dates: start: 2014
  8. OXYCODONE [Concomitant]
     Active Substance: OXYCODONE
     Dates: start: 2015

REACTIONS (2)
  - Alopecia [Not Recovered/Not Resolved]
  - Madarosis [Not Recovered/Not Resolved]

NARRATIVE: CASE EVENT DATE: 2014
